FAERS Safety Report 9686291 (Version 1)
Quarter: 2013Q4

REPORT INFORMATION
  Report Type: Spontaneous
  Country: CA (occurrence: None)
  Receive Date: 20131108
  Receipt Date: 20131108
  Transmission Date: 20140711
  Serious: Yes (Other)
  Sender: FDA-Public Use
  Company Number: FK201304848

PATIENT
  Age: 28 Year
  Sex: Female

DRUGS (4)
  1. MAGNESIUM SULFATE [Suspect]
     Route: 040
  2. LABETAOLOL [Concomitant]
  3. OXYTOCIN [Concomitant]
  4. ANESTHETICS [Concomitant]

REACTIONS (8)
  - Postpartum haemorrhage [None]
  - Wrong drug administered [None]
  - Toxicity to various agents [None]
  - Exposure during pregnancy [None]
  - Traumatic delivery [None]
  - Dyspnoea [None]
  - Respiratory arrest [None]
  - Pericardial effusion [None]
